FAERS Safety Report 7418494-6 (Version None)
Quarter: 2011Q2

REPORT INFORMATION
  Report Type: 
  Country: None (occurrence: None)
  Receive Date: 20110415
  Receipt Date: 20110408
  Transmission Date: 20111010
  Serious: Yes (Other)
  Sender: FDA-Public Use
  Company Number: GB-TEVA-276413ISR

PATIENT
  Age: 78 Year
  Sex: Female
  Weight: 56 kg

DRUGS (1)
  1. ALENDRONATE SODIUM [Suspect]
     Dosage: 10 MILLIGRAM;
     Dates: start: 20110330

REACTIONS (1)
  - HICCUPS [None]
